FAERS Safety Report 20163302 (Version 1)
Quarter: 2021Q4

REPORT INFORMATION
  Report Type: Spontaneous
  Country: IL (occurrence: IL)
  Receive Date: 20211209
  Receipt Date: 20211209
  Transmission Date: 20220303
  Serious: Yes (Death, Other)
  Sender: FDA-Public Use
  Company Number: IL-AMGEN-ISRSP2021192502

PATIENT

DRUGS (17)
  1. FILGRASTIM [Suspect]
     Active Substance: FILGRASTIM
     Indication: Prophylaxis
     Dosage: 5 MILLIGRAM/KILOGRAM, QD
     Route: 065
  2. ELTROMBOPAG [Concomitant]
     Active Substance: ELTROMBOPAG
     Dosage: 100 MILLIGRAM, QD
     Route: 065
  3. ELTROMBOPAG [Concomitant]
     Active Substance: ELTROMBOPAG
     Dosage: 50 MILLIGRAM, QD
     Route: 065
  4. ELTROMBOPAG [Concomitant]
     Active Substance: ELTROMBOPAG
     Dosage: 2 MILLIGRAM/KILOGRAM, QD
     Route: 065
  5. ELTROMBOPAG [Concomitant]
     Active Substance: ELTROMBOPAG
     Dosage: 300 MILLIGRAM, QD
     Route: 065
  6. ELTROMBOPAG [Concomitant]
     Active Substance: ELTROMBOPAG
     Dosage: 200 MILLIGRAM, QD
     Route: 065
  7. ELTROMBOPAG [Concomitant]
     Active Substance: ELTROMBOPAG
     Dosage: 150 MILLIGRAM, QD
     Route: 065
  8. ELTROMBOPAG [Concomitant]
     Active Substance: ELTROMBOPAG
     Dosage: 3.5 MILLIGRAM/KILOGRAM, QD
     Route: 065
  9. FLUDARABINE [Concomitant]
     Active Substance: FLUDARABINE PHOSPHATE
     Dosage: 200 MILLIGRAM/SQ. METER
     Route: 042
  10. FLUDARABINE [Concomitant]
     Active Substance: FLUDARABINE PHOSPHATE
     Dosage: 150 MILLIGRAM/SQ. METER
     Route: 042
  11. CYCLOPHOSPHAMIDE [Concomitant]
     Active Substance: CYCLOPHOSPHAMIDE
     Dosage: 50 MILLIGRAM/KILOGRAM
     Route: 042
  12. THIOTEPA [Concomitant]
     Active Substance: THIOTEPA
     Dosage: 10 MILLIGRAM/KILOGRAM
     Route: 042
  13. BUSULFEX [Concomitant]
     Active Substance: BUSULFAN
     Dosage: 9.6 MILLIGRAM/KILOGRAM
     Route: 042
  14. CYCLOSPORINE [Concomitant]
     Active Substance: CYCLOSPORINE
  15. MYCOPHENOLATE MOFETIL [Concomitant]
     Active Substance: MYCOPHENOLATE MOFETIL
  16. PREDNISONE [Concomitant]
     Active Substance: PREDNISONE
  17. THYMOGLOBULIN [Concomitant]
     Active Substance: LAPINE T-LYMPHOCYTE IMMUNE GLOBULIN

REACTIONS (12)
  - Pneumonia fungal [Fatal]
  - Pneumonia [Fatal]
  - Acute lymphocytic leukaemia [Fatal]
  - Plasma cell myeloma [Fatal]
  - Septic shock [Fatal]
  - Acute graft versus host disease [Unknown]
  - Chronic graft versus host disease [Unknown]
  - Deep vein thrombosis postoperative [Unknown]
  - Viral haemorrhagic cystitis [Unknown]
  - Transplant failure [Unknown]
  - Mucosal inflammation [Unknown]
  - Nausea [Unknown]
